FAERS Safety Report 23669971 (Version 1)
Quarter: 2024Q1

REPORT INFORMATION
  Report Type: Spontaneous
  Country: CN (occurrence: CN)
  Receive Date: 20240325
  Receipt Date: 20240325
  Transmission Date: 20240410
  Serious: Yes (Other)
  Sender: FDA-Public Use
  Company Number: None

PATIENT
  Age: 61 Year
  Sex: Male
  Weight: 52.7 kg

DRUGS (5)
  1. LIPIODOL ULTRA-FLUIDE [Suspect]
     Active Substance: ETHIODIZED OIL
     Indication: Transcatheter arterial chemoembolisation
     Dosage: 8 ML OF LIPIODOL WITH 50 MG OF PHARMORUBICIN
     Route: 013
     Dates: start: 20231206, end: 20231206
  2. EPIRUBICIN [Suspect]
     Active Substance: EPIRUBICIN
     Indication: Transcatheter arterial chemoembolisation
     Dosage: 8 ML OF LIPIODOL WITH 50 MG OF PHARMORUBICIN
     Route: 013
     Dates: start: 20231206
  3. OXALIPLATIN [Suspect]
     Active Substance: OXALIPLATIN
     Indication: Regional chemotherapy
     Dosage: 150 MG OF OXALIPLATIN, 0.2 GM OF CALCIUM FOLINATE AND 3000 MG OF FLUOROURACIL (MICRO-PUMP IN)
     Route: 013
     Dates: start: 20231206
  4. LEUCOVORIN CALCIUM [Suspect]
     Active Substance: LEUCOVORIN CALCIUM
     Indication: Regional chemotherapy
     Dosage: 150 MG OF OXALIPLATIN, 0.2 GM OF CALCIUM FOLINATE AND 3000 MG OF FLUOROURACIL (MICRO-PUMP IN)
     Route: 013
     Dates: start: 20231206
  5. FLUOROURACIL [Suspect]
     Active Substance: FLUOROURACIL
     Indication: Regional chemotherapy
     Dosage: 150 MG OF OXALIPLATIN, 0.2 GM OF CALCIUM FOLINATE AND 3000 MG OF FLUOROURACIL (MICRO-PUMP IN)
     Route: 013
     Dates: start: 20231206

REACTIONS (2)
  - Jaundice [Recovering/Resolving]
  - Biliary tract disorder [Unknown]

NARRATIVE: CASE EVENT DATE: 20240221
